FAERS Safety Report 21315580 (Version 1)
Quarter: 2022Q3

REPORT INFORMATION
  Report Type: Report from Study
  Country: US (occurrence: US)
  Receive Date: 20220909
  Receipt Date: 20220909
  Transmission Date: 20221026
  Serious: Yes (Other)
  Sender: FDA-Public Use
  Company Number: US-SEAGEN-2022SGN08302

PATIENT
  Age: 59 Year
  Sex: Female

DRUGS (2)
  1. TISOTUMAB VEDOTIN [Suspect]
     Active Substance: TISOTUMAB VEDOTIN
     Indication: Cervix carcinoma
     Dosage: UNK
     Route: 065
     Dates: start: 202204
  2. OPDIVO [Suspect]
     Active Substance: NIVOLUMAB
     Indication: Cervix carcinoma
     Route: 065

REACTIONS (15)
  - Hyperthyroidism [Unknown]
  - Neuropathy peripheral [Recovering/Resolving]
  - Dyspnoea exertional [Unknown]
  - Pain [Unknown]
  - Vaginal discharge [Unknown]
  - Eye disorder [Unknown]
  - Depression [Unknown]
  - Vision blurred [Unknown]
  - Eye discharge [Unknown]
  - Vaginal haemorrhage [Unknown]
  - Eye pruritus [Unknown]
  - Dry eye [Unknown]
  - Burning sensation [Recovering/Resolving]
  - Hypoaesthesia [Recovering/Resolving]
  - Fatigue [Unknown]
